FAERS Safety Report 15036534 (Version 1)
Quarter: 2018Q2

REPORT INFORMATION
  Report Type: Spontaneous
  Country: RU (occurrence: RU)
  Receive Date: 20180620
  Receipt Date: 20180620
  Transmission Date: 20180711
  Serious: Yes (Other)
  Sender: FDA-Public Use
  Company Number: RU-PFIZER INC-2018245927

PATIENT
  Age: 29 Year
  Sex: Female

DRUGS (1)
  1. ZOLOFT [Suspect]
     Active Substance: SERTRALINE HYDROCHLORIDE
     Indication: PANIC ATTACK
     Dosage: UNK, ONCE A DAY

REACTIONS (3)
  - Prolactin-producing pituitary tumour [Unknown]
  - Adenoma benign [Unknown]
  - Menstrual disorder [Unknown]
